FAERS Safety Report 24631619 (Version 2)
Quarter: 2025Q1

REPORT INFORMATION
  Report Type: Spontaneous
  Country: GB (occurrence: GB)
  Receive Date: 20241118
  Receipt Date: 20250102
  Transmission Date: 20250409
  Serious: Yes (Other)
  Sender: CIPLA
  Company Number: GB-MHRA-MED-202411051301474680-QMLGR

PATIENT

DRUGS (1)
  1. FINASTERIDE [Suspect]
     Active Substance: FINASTERIDE
     Indication: Androgenetic alopecia
     Dosage: 1 MILLIGRAM, QD (NIGHT)
     Route: 065
     Dates: start: 20240601

REACTIONS (6)
  - Loss of libido [Recovering/Resolving]
  - Genital disorder [Recovering/Resolving]
  - Tearfulness [Recovering/Resolving]
  - Depression [Recovering/Resolving]
  - Semen volume decreased [Recovering/Resolving]
  - Erectile dysfunction [Recovering/Resolving]
